FAERS Safety Report 6424340-X (Version None)
Quarter: 2009Q4

REPORT INFORMATION
  Report Type: 
  Country: None (occurrence: None)
  Receive Date: 20091103
  Receipt Date: 20091029
  Transmission Date: 20100525
  Serious: Yes (Hospitalization)
  Sender: FDA-Public Use
  Company Number: US-BIOGENIDEC-2009BI033021

PATIENT
  Age: 61 Year
  Sex: Female
  Weight: 43 kg

DRUGS (23)
  1. TYSABRI [Suspect]
     Indication: MULTIPLE SCLEROSIS
     Route: 042
     Dates: start: 20071109
  2. LIPITOR [Concomitant]
     Indication: HYPERLIPIDAEMIA
  3. PROVIGIL [Concomitant]
  4. DOCUSATE [Concomitant]
     Indication: CONSTIPATION
  5. DOCUSATE [Concomitant]
     Indication: GASTROINTESTINAL MOTILITY DISORDER
  6. DOCUSATE [Concomitant]
     Indication: SMALL INTESTINAL OBSTRUCTION
  7. PROSTIGMIN BROMIDE [Concomitant]
  8. MULTI-VITAMIN [Concomitant]
  9. CALCIUM WITH VITAMIN D [Concomitant]
  10. CELEXA [Concomitant]
  11. TIZANADINE [Concomitant]
  12. TIZANADINE [Concomitant]
  13. OXYBUTYNIN CHLORIDE [Concomitant]
  14. LACTULOSE [Concomitant]
     Indication: CONSTIPATION
  15. LACTULOSE [Concomitant]
     Indication: GASTROINTESTINAL MOTILITY DISORDER
  16. LACTULOSE [Concomitant]
     Indication: SMALL INTESTINAL OBSTRUCTION
  17. MIRALAX [Concomitant]
     Indication: GASTROINTESTINAL MOTILITY DISORDER
     Route: 048
  18. MIRALAX [Concomitant]
     Indication: CONSTIPATION
     Route: 048
  19. MIRALAX [Concomitant]
     Indication: SMALL INTESTINAL OBSTRUCTION
     Route: 048
  20. BOTOX [Concomitant]
  21. HYDROCHLOROTHIAZIDE [Concomitant]
  22. METHENAMINE MANDELATE [Concomitant]
  23. TERAZOSIN HCL [Concomitant]

REACTIONS (5)
  - ABDOMINAL PAIN [None]
  - DIARRHOEA [None]
  - ENTEROCOCCAL INFECTION [None]
  - SMALL INTESTINAL OBSTRUCTION [None]
  - URINARY TRACT INFECTION [None]
